FAERS Safety Report 23789759 (Version 2)
Quarter: 2024Q2

REPORT INFORMATION
  Report Type: Spontaneous
  Country: US (occurrence: US)
  Receive Date: 20240426
  Receipt Date: 20240515
  Transmission Date: 20240716
  Serious: Yes (Hospitalization, Disabling, Other)
  Sender: FDA-Public Use
  Company Number: US-BAYER-2024A059782

PATIENT
  Sex: Female
  Weight: 27.211 kg

DRUGS (3)
  1. CIPRO [Suspect]
     Active Substance: CIPROFLOXACIN\CIPROFLOXACIN HYDROCHLORIDE
     Indication: Urinary tract infection
     Dosage: 500 MG, BID
     Route: 048
     Dates: start: 20210417, end: 20210418
  2. MACROBID [Concomitant]
     Active Substance: NITROFURANTOIN\NITROFURANTOIN MONOHYDRATE
     Dosage: UNK
     Dates: start: 20210416
  3. GABAPENTIN [Concomitant]
     Active Substance: GABAPENTIN

REACTIONS (54)
  - Blindness [None]
  - Illness [None]
  - Hypotension [None]
  - Heart rate decreased [None]
  - Rash [None]
  - Urticaria [None]
  - Hypersensitivity [None]
  - Loss of consciousness [None]
  - Mast cell activation syndrome [None]
  - Cachexia [None]
  - Starvation [None]
  - Neuropathy peripheral [None]
  - Oedema [None]
  - Hospice care [None]
  - Wound [None]
  - Wound complication [None]
  - Skin wound [None]
  - Mobility decreased [None]
  - Alopecia [None]
  - Pallor [None]
  - Acne [None]
  - Dysphagia [None]
  - Palliative care [None]
  - Oral candidiasis [None]
  - Pain in extremity [None]
  - Paraesthesia [None]
  - Inflammation [None]
  - Tendon pain [None]
  - Headache [None]
  - Neurological symptom [None]
  - C-reactive protein increased [None]
  - Myalgia [None]
  - Weight decreased [None]
  - Malnutrition [None]
  - Pain [None]
  - Ulcer [None]
  - Neuralgia [None]
  - Muscular weakness [None]
  - Dysphagia [None]
  - Nausea [None]
  - Pyrexia [None]
  - Asthenia [None]
  - Migraine [None]
  - Headache [None]
  - Nightmare [None]
  - Insomnia [None]
  - Depression [None]
  - Balance disorder [None]
  - Mobility decreased [None]
  - Gait disturbance [None]
  - Loss of personal independence in daily activities [None]
  - Coordination abnormal [None]
  - Skin injury [None]
  - Emotional distress [None]

NARRATIVE: CASE EVENT DATE: 20210101
